FAERS Safety Report 18316101 (Version 1)
Quarter: 2020Q3

REPORT INFORMATION
  Report Type: Spontaneous
  Country: NO (occurrence: NO)
  Receive Date: 20200927
  Receipt Date: 20200927
  Transmission Date: 20201103
  Serious: Yes (Life-Threatening)
  Sender: FDA-Public Use
  Company Number: NO-TEVA-2020-NO-1831662

PATIENT
  Age: 20 Year
  Sex: Male
  Weight: 100 kg

DRUGS (1)
  1. BENZATHINE PHENOXYMETHYL PENICILLIN [Suspect]
     Active Substance: PENICILLIN V BENZATHINE
     Indication: ARTHROPOD BITE
     Dosage: 3 DOSAGE FORMS
     Route: 065
     Dates: start: 20070701, end: 20070706

REACTIONS (7)
  - Body temperature increased [Recovered/Resolved]
  - Swelling [Recovered/Resolved]
  - Asthma [Recovered/Resolved]
  - Pruritus [Recovered/Resolved]
  - Palpitations [Recovered/Resolved]
  - Urticaria [Unknown]
  - Cold sweat [Recovered/Resolved]

NARRATIVE: CASE EVENT DATE: 20070701
